FAERS Safety Report 24959026 (Version 1)
Quarter: 2025Q1

REPORT INFORMATION
  Report Type: Spontaneous
  Country: CH (occurrence: CH)
  Receive Date: 20250212
  Receipt Date: 20250212
  Transmission Date: 20250408
  Serious: Yes (Other)
  Sender: NOVARTIS
  Company Number: CH-002147023-NVSC2025CH022052

PATIENT
  Age: 75 Year
  Sex: Male
  Weight: 69 kg

DRUGS (3)
  1. LEQVIO [Suspect]
     Active Substance: INCLISIRAN SODIUM
     Indication: Dyslipidaemia
     Route: 058
     Dates: start: 20240815
  2. LEQVIO [Suspect]
     Active Substance: INCLISIRAN SODIUM
     Indication: Blood cholesterol increased
  3. LEQVIO [Suspect]
     Active Substance: INCLISIRAN SODIUM
     Indication: Drug intolerance

REACTIONS (4)
  - Prostatitis [Not Recovered/Not Resolved]
  - Urinary tract infection [Not Recovered/Not Resolved]
  - Dysuria [Not Recovered/Not Resolved]
  - Penile discharge [Unknown]

NARRATIVE: CASE EVENT DATE: 20240815
